FAERS Safety Report 26085768 (Version 1)
Quarter: 2025Q4

REPORT INFORMATION
  Report Type: Spontaneous
  Country: US (occurrence: US)
  Receive Date: 20251125
  Receipt Date: 20251125
  Transmission Date: 20260117
  Serious: Yes (Hospitalization, Other)
  Sender: BIOLOGICAL E. LIMITED
  Company Number: US-BELUSA-2025BELLIT0069

PATIENT

DRUGS (2)
  1. HEPARIN SODIUM [Suspect]
     Active Substance: HEPARIN SODIUM
     Indication: Deep vein thrombosis
  2. HEPARIN SODIUM [Suspect]
     Active Substance: HEPARIN SODIUM
     Dosage: RESTARTED ON SUBCUTANEOUS HEPARIN 5,000 UNITS ON POD 5

REACTIONS (2)
  - Monoplegia [Not Recovered/Not Resolved]
  - Spinal epidural haematoma [Not Recovered/Not Resolved]
